FAERS Safety Report 24573743 (Version 1)
Quarter: 2024Q4

REPORT INFORMATION
  Report Type: Spontaneous
  Country: US (occurrence: US)
  Receive Date: 20241103
  Receipt Date: 20241103
  Transmission Date: 20250115
  Serious: Yes (Hospitalization)
  Sender: ELI LILLY AND COMPANY
  Company Number: US-ELI_LILLY_AND_COMPANY-US202410021370

PATIENT
  Age: 57 Year
  Sex: Female

DRUGS (3)
  1. CYMBALTA [Suspect]
     Active Substance: DULOXETINE HYDROCHLORIDE
     Indication: Product used for unknown indication
     Dosage: UNK, UNKNOWN
     Route: 065
  2. VIVITROL [Suspect]
     Active Substance: NALTREXONE
     Indication: Alcohol use disorder
     Dosage: 380 MG, MONTHLY (1/M)
     Route: 030
     Dates: start: 202409
  3. VIVITROL [Suspect]
     Active Substance: NALTREXONE
     Indication: Delirium tremens

REACTIONS (2)
  - Nausea [Unknown]
  - Vomiting [Unknown]

NARRATIVE: CASE EVENT DATE: 20240101
